FAERS Safety Report 8602057 (Version 3)
Quarter: 2012Q4

REPORT INFORMATION
  Report Type: 
  Country: US (occurrence: US)
  Receive Date: 20120607
  Receipt Date: 20121109
  Transmission Date: 20130627
  Serious: Yes (Hospitalization)
  Sender: FDA-Public Use
  Company Number: US-BIOGENIDEC-2012BI019531

PATIENT
  Age: 33 Year
  Sex: Male

DRUGS (1)
  1. TYSABRI [Suspect]
     Indication: MULTIPLE SCLEROSIS
     Route: 042
     Dates: start: 20090512, end: 20120418

REACTIONS (6)
  - Encephalopathy [Not Recovered/Not Resolved]
  - Pneumonia haemophilus [Recovered/Resolved]
  - Sepsis [Recovered/Resolved]
  - Cholecystitis [Recovered/Resolved]
  - Lung disorder [Unknown]
  - General symptom [Unknown]
